FAERS Safety Report 6027379-1 (Version None)
Quarter: 2009Q1

REPORT INFORMATION
  Report Type: 
  Country: None (occurrence: None)
  Receive Date: 20090105
  Receipt Date: 20081223
  Transmission Date: 20090719
  Serious: Yes (Death, Other)
  Sender: FDA-Public Use
  Company Number: GB-PFIZER INC-2008159753

PATIENT

DRUGS (12)
  1. VARENICLINE TARTRATE [Suspect]
     Route: 048
     Dates: start: 20081009
  2. AMLODIPINE BESILATE [Concomitant]
     Dosage: 5 MG, 1X/DAY
     Route: 048
  3. AMOXICILLIN AND AMOXICILLIN TRIHYDRATE [Concomitant]
     Dosage: 500 MG, 1X/DAY
     Route: 048
  4. ATENOLOL [Concomitant]
     Dosage: 50 MG, 1X/DAY
     Route: 048
  5. DOXAZOSIN MESILATE [Concomitant]
     Dosage: 1 MG, 1X/DAY
     Route: 048
  6. FUROSEMIDE [Concomitant]
     Dosage: 40 MG, 1X/DAY
     Route: 048
  7. GLICLAZIDE [Concomitant]
     Dosage: 80 MG, 1X/DAY
     Route: 048
  8. NITROGLYCERIN [Concomitant]
     Dosage: 2 DOSE FORMS
     Route: 060
  9. METFORMIN HCL [Concomitant]
     Dosage: 500 MG, 3X/DAY
     Route: 048
  10. RAMIPRIL [Concomitant]
     Dosage: 2.5 MG, 1X/DAY
     Route: 048
  11. SIMVASTATIN [Concomitant]
     Dosage: 20 MG, 1X/DAY
     Route: 048
  12. NICOTINE [Suspect]
     Indication: SMOKING CESSATION THERAPY
     Dosage: UNK
     Dates: start: 20070312

REACTIONS (2)
  - HYPERTENSIVE HEART DISEASE [None]
  - MYOCARDIAL ISCHAEMIA [None]
